FAERS Safety Report 4311160-5 (Version None)
Quarter: 2004Q1

REPORT INFORMATION
  Report Type: 
  Country: None (occurrence: None)
  Receive Date: 20040302
  Receipt Date: 20040223
  Transmission Date: 20041129
  Serious: No
  Sender: FDA-Public Use
  Company Number: 2004UW03255

PATIENT
  Age: 65 Year
  Sex: Male

DRUGS (1)
  1. SEROQUEL [Suspect]
     Indication: AGITATION
     Dosage: 100 MG PO
     Route: 048

REACTIONS (1)
  - PANCYTOPENIA [None]
